FAERS Safety Report 9548392 (Version 3)
Quarter: 2013Q3

REPORT INFORMATION
  Report Type: Report from Study
  Country: US (occurrence: US)
  Receive Date: 20130924
  Receipt Date: 20130930
  Transmission Date: 20140515
  Serious: Yes (Death)
  Sender: FDA-Public Use
  Company Number: PHEH2012US026025

PATIENT
  Age: 73 Year
  Sex: Male

DRUGS (1)
  1. GLEEVEC [Suspect]
     Indication: ANAL CANCER
     Dosage: 400 MG, QD
     Route: 048
     Dates: start: 20121009, end: 20121206

REACTIONS (2)
  - Death [Fatal]
  - No therapeutic response [Unknown]
